FAERS Safety Report 12624607 (Version 1)
Quarter: 2016Q3

REPORT INFORMATION
  Report Type: Spontaneous
  Country: US (occurrence: None)
  Receive Date: 20160804
  Receipt Date: 20160804
  Transmission Date: 20161109
  Serious: No
  Sender: FDA-Public Use
  Company Number: None

PATIENT
  Sex: Male

DRUGS (1)
  1. TOUJEO [Suspect]
     Active Substance: INSULIN GLARGINE

REACTIONS (9)
  - Blood glucose increased [None]
  - Drug dose omission [None]
  - Blood pressure decreased [None]
  - Somnolence [None]
  - Tongue discomfort [None]
  - Nausea [None]
  - Headache [None]
  - Vision blurred [None]
  - Fatigue [None]
